FAERS Safety Report 4377544-4 (Version None)
Quarter: 2004Q2

REPORT INFORMATION
  Report Type: 
  Country: None (occurrence: None)
  Receive Date: 20040609
  Receipt Date: 20040406
  Transmission Date: 20050107
  Serious: No
  Sender: FDA-Public Use
  Company Number: PHEH2004US03951

PATIENT
  Sex: Female

DRUGS (1)
  1. GLEEVEC [Suspect]
     Dosage: 200 MG, QD, ORAL
     Route: 048

REACTIONS (4)
  - ABDOMINAL DISTENSION [None]
  - BLADDER DISCOMFORT [None]
  - HYPERTONIC BLADDER [None]
  - POLLAKIURIA [None]
